FAERS Safety Report 7166306-0 (Version None)
Quarter: 2010Q4

REPORT INFORMATION
  Report Type: 
  Country: None (occurrence: None)
  Receive Date: 20101216
  Receipt Date: 20101209
  Transmission Date: 20110411
  Serious: Yes (Death, Hospitalization, Other)
  Sender: FDA-Public Use
  Company Number: US-CELGENEUS-163-21880-10102696

PATIENT
  Sex: Male
  Weight: 51.847 kg

DRUGS (17)
  1. REVLIMID [Suspect]
     Indication: MULTIPLE MYELOMA
     Route: 048
     Dates: start: 20081201
  2. ALBUTEROL [Concomitant]
     Route: 065
  3. ALLOPURINOL [Concomitant]
     Route: 065
  4. ASPIRIN [Concomitant]
     Route: 065
  5. CALCIUM WITH VITAMIN D [Concomitant]
     Route: 065
  6. CENTRUM SILVER [Concomitant]
     Route: 065
  7. COLCHICINE [Concomitant]
     Route: 065
  8. DURAGESIC-100 [Concomitant]
     Route: 065
  9. LASIX [Concomitant]
     Route: 065
  10. ELMIRON [Concomitant]
     Route: 065
  11. MUCINEX [Concomitant]
     Route: 065
  12. PRILOSEC [Concomitant]
     Route: 065
  13. K-DUR [Concomitant]
     Route: 065
  14. ULTRAM [Concomitant]
     Route: 065
  15. ZANTAC [Concomitant]
     Route: 065
  16. LOVENOX [Concomitant]
     Route: 065
     Dates: start: 20101001
  17. COUMADIN [Concomitant]
     Route: 065
     Dates: start: 20101001

REACTIONS (3)
  - DEEP VEIN THROMBOSIS [None]
  - MULTI-ORGAN FAILURE [None]
  - PULMONARY EMBOLISM [None]
